FAERS Safety Report 6238491-6 (Version None)
Quarter: 2009Q2

REPORT INFORMATION
  Report Type: 
  Country: None (occurrence: None)
  Receive Date: 20090622
  Receipt Date: 20090611
  Transmission Date: 20091009
  Serious: Yes (Other)
  Sender: FDA-Public Use
  Company Number: US-ROCHE-638345

PATIENT
  Sex: Female
  Weight: 40.8 kg

DRUGS (2)
  1. PEG-INTERFERON A-2A (RO 25-8310) [Suspect]
     Indication: HEPATITIS C
     Dosage: FORM: PREFILLED SYRINGES
     Route: 065
     Dates: start: 20081031, end: 20090522
  2. RIBAVIRIN [Suspect]
     Indication: HEPATITIS C
     Dosage: DIVIDED DOSES
     Route: 065
     Dates: start: 20081031, end: 20090522

REACTIONS (2)
  - PRODUCTIVE COUGH [None]
  - TUMOUR MARKER INCREASED [None]
